FAERS Safety Report 14895503 (Version 1)
Quarter: 2018Q2

REPORT INFORMATION
  Report Type: Spontaneous
  Country: US (occurrence: US)
  Receive Date: 20180426
  Receipt Date: 20180426
  Transmission Date: 20180711
  Serious: Yes (Hospitalization)
  Sender: FDA-Public Use
  Company Number: None

PATIENT
  Age: 58 Year
  Sex: Male
  Weight: 58.97 kg

DRUGS (2)
  1. CEFEPIME [Suspect]
     Active Substance: CEFEPIME HYDROCHLORIDE
     Indication: OSTEOMYELITIS
     Dates: start: 20171201, end: 20171228
  2. GABAPENTIN. [Suspect]
     Active Substance: GABAPENTIN
     Indication: NEURALGIA
     Dates: start: 20171221

REACTIONS (5)
  - Acute kidney injury [None]
  - Mental status changes [None]
  - Renal tubular necrosis [None]
  - Hypophagia [None]
  - Haemodialysis [None]

NARRATIVE: CASE EVENT DATE: 20171226
